FAERS Safety Report 18948807 (Version 1)
Quarter: 2021Q1

REPORT INFORMATION
  Report Type: Spontaneous
  Country: US (occurrence: US)
  Receive Date: 20210227
  Receipt Date: 20210227
  Transmission Date: 20210420
  Serious: Yes (Hospitalization)
  Sender: FDA-Public Use
  Company Number: US-LUPIN PHARMACEUTICALS INC.-2021-02420

PATIENT
  Sex: Female

DRUGS (11)
  1. AMPHOTERICIN B, LIPOSOME [Suspect]
     Active Substance: AMPHOTERICIN B
     Indication: MENINGITIS COCCIDIOIDES
     Dosage: 5 MILLIGRAM/KILOGRAM, QD THREE TIMES WEEKLY
     Route: 042
  2. AMPHOTERICIN B DEOXYCHOLATE [Concomitant]
     Active Substance: AMPHOTERICIN B
     Dosage: 0.3 MILLIGRAM, THREE TIMES PER WEEK; ON 2 OCCASIONS
     Route: 037
  3. AMPHOTERICIN B DEOXYCHOLATE [Concomitant]
     Active Substance: AMPHOTERICIN B
     Dosage: OVER THE COURSE OF 6 MONTHS IN TOTAL (TAPERED DOSE)
     Route: 037
  4. VORICONAZOLE. [Suspect]
     Active Substance: VORICONAZOLE
     Indication: MENINGITIS COCCIDIOIDES
     Dosage: 160 MILLIGRAM, BID
     Route: 048
  5. FLUCONAZOLE. [Suspect]
     Active Substance: FLUCONAZOLE
     Indication: MENINGITIS COCCIDIOIDES
     Dosage: 200 MILLIGRAM, UNK
     Route: 048
  6. AMPHOTERICIN B DEOXYCHOLATE [Concomitant]
     Active Substance: AMPHOTERICIN B
     Dosage: OVER THE COURSE OF 6 MONTHS IN TOTAL (TAPERED DOSE)
     Route: 037
  7. AMPHOTERICIN B, LIPOSOME [Suspect]
     Active Substance: AMPHOTERICIN B
     Dosage: UNK (RE?STARTED THREE TIMES WEEKLY INITIALLY, THEN CONTINUED TWICE WEEKLY FOR 15 MONTHS )
     Route: 042
  8. POSACONAZOLE [Suspect]
     Active Substance: POSACONAZOLE
     Indication: MENINGITIS COCCIDIOIDES
     Dosage: 300 MILLIGRAM, QD
     Route: 048
  9. AMPHOTERICIN B DEOXYCHOLATE [Concomitant]
     Active Substance: AMPHOTERICIN B
     Dosage: 0.05 MILLIGRAM EVERY WEEK
     Route: 037
  10. AMPHOTERICIN B DEOXYCHOLATE [Concomitant]
     Active Substance: AMPHOTERICIN B
     Indication: MENINGITIS COCCIDIOIDES
     Dosage: 0.05 MILLIGRAM
     Route: 037
  11. AMPHOTERICIN B DEOXYCHOLATE [Concomitant]
     Active Substance: AMPHOTERICIN B
     Dosage: TAPERED INITIALLY THREE TIMES WEEKLY THEN TWICE WEEKLY FOLLOWED BY ONCE WEEKLY OVER THE COURSE OF 6
     Route: 037

REACTIONS (1)
  - Treatment failure [Unknown]
